FAERS Safety Report 5427065-2 (Version None)
Quarter: 2007Q3

REPORT INFORMATION
  Report Type: 
  Country: None (occurrence: None)
  Receive Date: 20070824
  Receipt Date: 20070824
  Transmission Date: 20080115
  Serious: Yes (Hospitalization)
  Sender: FDA-Public Use
  Company Number: None

PATIENT
  Age: 18 Year
  Sex: Male

DRUGS (1)
  1. BUPROPION HCL [Suspect]
     Indication: DEPRESSION
     Dosage: 3GM (300 MG X 10)
     Dates: start: 20070602

REACTIONS (4)
  - CONVULSION [None]
  - INCORRECT DOSE ADMINISTERED [None]
  - SINUS TACHYCARDIA [None]
  - VOMITING [None]
